FAERS Safety Report 7150059-6 (Version None)
Quarter: 2010Q4

REPORT INFORMATION
  Report Type: 
  Country: None (occurrence: None)
  Receive Date: 20101210
  Receipt Date: 20101202
  Transmission Date: 20110411
  Serious: Yes (Hospitalization)
  Sender: FDA-Public Use
  Company Number: US-PFIZER INC-2009205483

PATIENT
  Sex: Female
  Weight: 68.027 kg

DRUGS (2)
  1. LYRICA [Suspect]
     Indication: HERPES ZOSTER
     Dosage: 50 MG, 4X/DAY
     Route: 048
  2. LYRICA [Suspect]
     Indication: NEURALGIA

REACTIONS (1)
  - GASTRIC DISORDER [None]
